FAERS Safety Report 10279579 (Version 1)
Quarter: 2014Q3

REPORT INFORMATION
  Report Type: Report from Study
  Country: JP (occurrence: JP)
  Receive Date: 20140707
  Receipt Date: 20140707
  Transmission Date: 20150326
  Serious: Yes (Death, Life-Threatening, Other)
  Sender: FDA-Public Use
  Company Number: JP-ROCHE-1423468

PATIENT

DRUGS (1)
  1. MYCOPHENOLATE MOFETIL. [Suspect]
     Active Substance: MYCOPHENOLATE MOFETIL
     Indication: PROPHYLAXIS AGAINST GRAFT VERSUS HOST DISEASE
     Route: 065

REACTIONS (44)
  - Gastrointestinal haemorrhage [Fatal]
  - Herpes simplex meningoencephalitis [Unknown]
  - Renal tubular acidosis [Unknown]
  - Dyspepsia [Unknown]
  - Abdominal pain [Unknown]
  - Cytomegalovirus infection [Fatal]
  - Fungal infection [Fatal]
  - Interstitial lung disease [Unknown]
  - Transplant failure [Unknown]
  - Respiratory failure [Fatal]
  - Sepsis [Fatal]
  - Vomiting [Unknown]
  - Diarrhoea [Unknown]
  - Rhabdomyolysis [Unknown]
  - Hypogammaglobulinaemia [Unknown]
  - Drug eruption [Unknown]
  - Histiocytosis haematophagic [Fatal]
  - Staphylococcal infection [Fatal]
  - Brain abscess [Fatal]
  - Adenovirus infection [Fatal]
  - Neutropenia [Unknown]
  - Hypoalbuminaemia [Unknown]
  - Constipation [Unknown]
  - Tongue coated [Unknown]
  - Multi-organ failure [Fatal]
  - Cytomegalovirus colitis [Fatal]
  - Pseudomonas infection [Fatal]
  - Bone marrow failure [Unknown]
  - Nausea [Unknown]
  - Infection [Unknown]
  - Vertigo [Unknown]
  - Gastritis herpes [Unknown]
  - Epstein-Barr virus infection [Fatal]
  - Nervous system disorder [Fatal]
  - Ileus [Fatal]
  - Hypophagia [Unknown]
  - Thrombotic microangiopathy [Fatal]
  - Stomatitis [Unknown]
  - Lymphoproliferative disorder [Fatal]
  - Pneumonia [Fatal]
  - Thrombocytopenia [Unknown]
  - Aplasia pure red cell [Unknown]
  - Angioedema [Unknown]
  - Renal disorder [Unknown]
